FAERS Safety Report 11739977 (Version 1)
Quarter: 2015Q4

REPORT INFORMATION
  Report Type: Spontaneous
  Country: US (occurrence: US)
  Receive Date: 20151113
  Receipt Date: 20151113
  Transmission Date: 20160304
  Serious: No
  Sender: FDA-Public Use
  Company Number: US-BAUSCH-2014MAR00024

PATIENT
  Age: 39 Year
  Sex: Male

DRUGS (1)
  1. SECONAL SODIUM [Suspect]
     Active Substance: SECOBARBITAL SODIUM
     Indication: PRODUCT USED FOR UNKNOWN INDICATION
     Dosage: 100 MG, 1X/DAY
     Route: 048
     Dates: start: 20141228, end: 201412

REACTIONS (2)
  - Product tampering [None]
  - Drug ineffective [Unknown]

NARRATIVE: CASE EVENT DATE: 201412
